FAERS Safety Report 13421603 (Version 1)
Quarter: 2017Q2

REPORT INFORMATION
  Report Type: Spontaneous
  Country: CN (occurrence: CN)
  Receive Date: 20170410
  Receipt Date: 20170410
  Transmission Date: 20170830
  Serious: Yes (Hospitalization)
  Sender: FDA-Public Use
  Company Number: CN-ROCHE-1917277

PATIENT
  Age: 45 Year
  Sex: Male

DRUGS (7)
  1. PLASMA EXCHANGE [Concomitant]
     Active Substance: ALBUMIN HUMAN
     Route: 065
  2. RITUXIMAB [Suspect]
     Active Substance: RITUXIMAB
     Indication: THROMBOTIC THROMBOCYTOPENIC PURPURA
     Route: 065
  3. PLASMA EXCHANGE [Concomitant]
     Active Substance: ALBUMIN HUMAN
     Route: 065
  4. PREDNISONE. [Concomitant]
     Active Substance: PREDNISONE
     Route: 048
  5. PLASMA EXCHANGE [Concomitant]
     Active Substance: ALBUMIN HUMAN
     Route: 065
  6. PLASMA EXCHANGE [Concomitant]
     Active Substance: ALBUMIN HUMAN
     Route: 065
  7. PLASMA EXCHANGE [Concomitant]
     Active Substance: ALBUMIN HUMAN
     Route: 065

REACTIONS (2)
  - Pneumocystis jirovecii pneumonia [Recovering/Resolving]
  - Off label use [Unknown]
